FAERS Safety Report 13965657 (Version 2)
Quarter: 2018Q1

REPORT INFORMATION
  Report Type: Spontaneous
  Country: US (occurrence: US)
  Receive Date: 20170913
  Receipt Date: 20180321
  Transmission Date: 20180508
  Serious: Yes (Hospitalization)
  Sender: FDA-Public Use
  Company Number: US-PFIZER INC-2017392080

PATIENT
  Age: 62 Year
  Sex: Male
  Weight: 118 kg

DRUGS (11)
  1. EXFORGE HCT [Concomitant]
     Active Substance: AMLODIPINE BESYLATE\HYDROCHLOROTHIAZIDE\VALSARTAN
     Indication: HYPERTENSION
     Dosage: 10MG/320MG/25MG, 1X/DAY
     Route: 048
     Dates: end: 201706
  2. LYRICA [Suspect]
     Active Substance: PREGABALIN
     Indication: PAIN IN EXTREMITY
  3. FUROSEMIDE. [Concomitant]
     Active Substance: FUROSEMIDE
     Dosage: 20MG TABLET, ONE AND HALF ONCE DAILY
  4. LIPITOR [Concomitant]
     Active Substance: ATORVASTATIN CALCIUM
     Indication: BLOOD CHOLESTEROL INCREASED
     Dosage: 20 MG, 1X/DAY
     Route: 048
  5. OMEPRAZOLE. [Concomitant]
     Active Substance: OMEPRAZOLE
     Indication: GASTROOESOPHAGEAL REFLUX DISEASE
     Dosage: 40 MG, 1X/DAY
     Route: 048
  6. TYLENOL WITH CODEINE [Concomitant]
     Active Substance: ACETAMINOPHEN\CODEINE PHOSPHATE
     Indication: BACK PAIN
     Dosage: 300/30MG, AS NEEDED
     Route: 048
  7. ELIQUIS [Concomitant]
     Active Substance: APIXABAN
     Indication: PULMONARY THROMBOSIS
     Dosage: 5 MG, 2X/DAY
     Route: 048
  8. LYRICA [Suspect]
     Active Substance: PREGABALIN
     Indication: NEUROPATHY PERIPHERAL
     Dosage: 75 MG, 2X/DAY
     Dates: start: 2010
  9. FLUOXETINE [Concomitant]
     Active Substance: FLUOXETINE HYDROCHLORIDE
     Indication: DEPRESSION
     Dosage: 20 MG, 1X/DAY
     Route: 048
  10. ZOLPIDEM [Concomitant]
     Active Substance: ZOLPIDEM\ZOLPIDEM TARTRATE
     Dosage: 10 MG, 1X/DAY
     Route: 048
  11. FUROSEMIDE. [Concomitant]
     Active Substance: FUROSEMIDE
     Indication: MICTURITION DISORDER
     Dosage: 20 MG, 1X/DAY

REACTIONS (1)
  - Presyncope [Unknown]
